FAERS Safety Report 5256857-8 (Version None)
Quarter: 2007Q1

REPORT INFORMATION
  Report Type: 
  Country: None (occurrence: None)
  Receive Date: 20070306
  Receipt Date: 20070221
  Transmission Date: 20070707
  Serious: Yes (Other)
  Sender: FDA-Public Use
  Company Number: US-ELI_LILLY_AND_COMPANY-US200607001841

PATIENT
  Age: 85 Year
  Sex: Male

DRUGS (6)
  1. FORTEO [Suspect]
     Indication: OSTEOPOROSIS
     Dosage: 20 UG, UNK
     Dates: start: 20050801
  2. COUMADIN [Concomitant]
  3. RANITIDINE [Concomitant]
  4. TRIAZOLAM [Concomitant]
  5. LANOXIN [Concomitant]
  6. LANSOPRAZOLE [Concomitant]

REACTIONS (1)
  - LUNG NEOPLASM MALIGNANT [None]
